FAERS Safety Report 20809623 (Version 1)
Quarter: 2022Q2

REPORT INFORMATION
  Report Type: Spontaneous
  Country: CA (occurrence: None)
  Receive Date: 20220510
  Receipt Date: 20220510
  Transmission Date: 20220721
  Serious: Yes (Hospitalization)
  Sender: FDA-Public Use
  Company Number: None

PATIENT
  Age: 2 Year
  Sex: Female
  Weight: 12.6 kg

DRUGS (2)
  1. COPPERTONE WATER BABIES [Suspect]
     Active Substance: AVOBENZONE\HOMOSALATE\OCTISALATE\OCTOCRYLENE
     Indication: Prophylaxis against solar radiation
     Dosage: FREQUENCY : DAILY;?
     Route: 061
     Dates: start: 20220424, end: 20220425
  2. BABY VIT D [Concomitant]

REACTIONS (5)
  - Swelling face [None]
  - Lip swelling [None]
  - Erythema [None]
  - Rash macular [None]
  - Peripheral swelling [None]

NARRATIVE: CASE EVENT DATE: 20220425
